FAERS Safety Report 4680589-8 (Version None)
Quarter: 2005Q2

REPORT INFORMATION
  Report Type: 
  Country: None (occurrence: None)
  Receive Date: 20050531
  Receipt Date: 20050329
  Transmission Date: 20051028
  Serious: No
  Sender: FDA-Public Use
  Company Number: WAES 0502USA00595

PATIENT
  Age: 63 Year
  Sex: Male
  Weight: 92.9874 kg

DRUGS (5)
  1. ZETIA [Suspect]
     Indication: HYPERLIPIDAEMIA
     Dosage: 10 MG/DAILY/PO
     Route: 048
     Dates: start: 20030505, end: 20030806
  2. FLOMAX [Concomitant]
  3. ZESTORETIC [Concomitant]
  4. ZOCOR [Concomitant]
  5. ZOCOR [Concomitant]

REACTIONS (2)
  - FATIGUE [None]
  - HEPATIC ENZYME INCREASED [None]
